FAERS Safety Report 4527635-X (Version None)
Quarter: 2004Q4

REPORT INFORMATION
  Report Type: 
  Country: None (occurrence: None)
  Receive Date: 20041215
  Receipt Date: 20041103
  Transmission Date: 20050328
  Serious: Yes (Death)
  Sender: FDA-Public Use
  Company Number: FRWYE173203NOV04

PATIENT
  Age: 72 Year
  Sex: Female
  Weight: 90 kg

DRUGS (9)
  1. ENBREL [Suspect]
     Indication: RHEUMATOID ARTHRITIS
     Dosage: NOT SPECIFIED
     Route: 058
     Dates: start: 20010611, end: 20040821
  2. COVERSYL [Suspect]
     Indication: CARDIAC FAILURE CONGESTIVE
     Route: 048
     Dates: start: 19951011
  3. CRESTOR [Suspect]
     Route: 048
     Dates: start: 20040524
  4. NITROGLYCERIN [Suspect]
     Route: 062
     Dates: start: 19951011
  5. ACETYLSALICYLATE LYSINE [Suspect]
     Route: 048
     Dates: start: 19951011
  6. MEDROL [Suspect]
     Indication: RHEUMATOID ARTHRITIS
     Route: 048
     Dates: start: 19980101
  7. SOLU-MEDROL [Suspect]
     Route: 042
     Dates: start: 20040822, end: 20040830
  8. VIOXX [Suspect]
     Indication: RHEUMATOID ARTHRITIS
     Route: 048
     Dates: start: 20040825
  9. ISOPTIN [Suspect]
     Route: 048
     Dates: start: 20040524

REACTIONS (9)
  - COLITIS [None]
  - DIVERTICULAR PERFORATION [None]
  - DRUG INEFFECTIVE [None]
  - GASTRITIS [None]
  - GASTROINTESTINAL DISORDER [None]
  - GENERAL PHYSICAL HEALTH DETERIORATION [None]
  - MONARTHRITIS [None]
  - PERITONITIS [None]
  - SMALL INTESTINAL PERFORATION [None]
